FAERS Safety Report 9217954 (Version 2)
Quarter: 2013Q2

REPORT INFORMATION
  Report Type: Spontaneous
  Country: FR (occurrence: FR)
  Receive Date: 20130408
  Receipt Date: 20130416
  Transmission Date: 20140414
  Serious: Yes (Other)
  Sender: FDA-Public Use
  Company Number: FR-ACTELION-A-CH2013-81543

PATIENT
  Sex: Female

DRUGS (4)
  1. TRACLEER [Suspect]
     Indication: PULMONARY ARTERIAL HYPERTENSION
     Dosage: 125 MG, BID
     Route: 048
     Dates: start: 20110628
  2. TRACLEER [Suspect]
     Dosage: 62.5 MG, BID
     Route: 048
     Dates: start: 20110529, end: 20110627
  3. REVATIO [Concomitant]
     Dosage: UNK
     Dates: start: 20110529
  4. PREVISCAN [Concomitant]
     Dosage: UNK
     Dates: start: 20110529

REACTIONS (2)
  - Abortion induced [Unknown]
  - Pregnancy [Unknown]
